FAERS Safety Report 6688093-2 (Version None)
Quarter: 2010Q2

REPORT INFORMATION
  Report Type: 
  Country: None (occurrence: None)
  Receive Date: 20100420
  Receipt Date: 20100413
  Transmission Date: 20101027
  Serious: Yes (Hospitalization)
  Sender: FDA-Public Use
  Company Number: JP-BAYER-201011853BYL

PATIENT
  Age: 77 Year
  Sex: Male
  Weight: 59 kg

DRUGS (12)
  1. NEXAVAR [Suspect]
     Indication: HEPATIC NEOPLASM MALIGNANT
     Dosage: TOTAL DAILY DOSE: 800 MG  UNIT DOSE: 200 MG
     Route: 048
     Dates: start: 20100323
  2. OLMESARTAN MEDOXOMIL [Suspect]
     Indication: DRUG USE FOR UNKNOWN INDICATION
     Route: 048
     Dates: start: 20100330
  3. AMLODIN OD [Concomitant]
     Route: 048
  4. OMEPRAL [Concomitant]
     Route: 065
  5. VESICARE [Concomitant]
     Route: 048
  6. CARNACULIN [Concomitant]
     Route: 048
  7. ADONA [Concomitant]
     Route: 065
  8. HYALEIN [Concomitant]
     Route: 031
  9. DICLOD [Concomitant]
     Route: 031
  10. RINDERON-VG [Concomitant]
     Route: 061
  11. KETOPROFEN [Concomitant]
     Route: 062
  12. VOLTAREN [Concomitant]
     Route: 062

REACTIONS (1)
  - HYPERKALAEMIA [None]
